FAERS Safety Report 6138945-7 (Version None)
Quarter: 2009Q1

REPORT INFORMATION
  Report Type: 
  Country: None (occurrence: None)
  Receive Date: 20090324
  Receipt Date: 20090319
  Transmission Date: 20090719
  Serious: Yes (Other)
  Sender: FDA-Public Use
  Company Number: PI-03223

PATIENT
  Age: 32 Year
  Sex: Female

DRUGS (1)
  1. CHLORAPREP WITH TINT [Suspect]
     Indication: PREOPERATIVE CARE
     Dosage: 10.5 ML, TWICE, TOPICAL
     Route: 061
     Dates: start: 20090310

REACTIONS (1)
  - CAUSTIC INJURY [None]
